FAERS Safety Report 5920976-0 (Version None)
Quarter: 2008Q4

REPORT INFORMATION
  Report Type: 
  Country: None (occurrence: None)
  Receive Date: 20081014
  Receipt Date: 20080929
  Transmission Date: 20090506
  Serious: Yes (Other)
  Sender: FDA-Public Use
  Company Number: 1000000723

PATIENT
  Age: 28 Year
  Sex: Female
  Weight: 92.2 kg

DRUGS (3)
  1. ESCITALOPRAM OXALATE [Suspect]
     Indication: PSYCHOTIC DISORDER
     Dosage: 5 MG (5 MG, 1 IN 1 D), ORAL; 10 MG (10 MG, 1 IN 1 D), ORAL
     Route: 048
     Dates: start: 20080101, end: 20080801
  2. ESCITALOPRAM OXALATE [Suspect]
     Indication: PSYCHOTIC DISORDER
     Dosage: 5 MG (5 MG, 1 IN 1 D), ORAL; 10 MG (10 MG, 1 IN 1 D), ORAL
     Route: 048
     Dates: start: 20080801, end: 20080801
  3. GYNEFIX [Suspect]

REACTIONS (5)
  - DIABETES MELLITUS [None]
  - DRUG EXPOSURE DURING PREGNANCY [None]
  - OTITIS MEDIA [None]
  - PRE-ECLAMPSIA [None]
  - PREGNANCY WITH CONTRACEPTIVE DEVICE [None]
